FAERS Safety Report 5085989-2 (Version None)
Quarter: 2006Q3

REPORT INFORMATION
  Report Type: 
  Country: None (occurrence: None)
  Receive Date: 20060817
  Receipt Date: 20060804
  Transmission Date: 20061208
  Serious: Yes (Hospitalization)
  Sender: FDA-Public Use
  Company Number: 2006097533

PATIENT
  Age: 69 Year
  Sex: Male

DRUGS (5)
  1. LYRICA [Suspect]
     Indication: NEUROPATHY PERIPHERAL
     Dosage: 150 MG (75 MG, 2 IN 1 D), ORAL
     Route: 048
     Dates: start: 20060315
  2. TEMAZEPAM [Suspect]
     Indication: DRUG USE FOR UNKNOWN INDICATION
     Dosage: 20 MG (20 MG, 1 N 1 D),
  3. PANTOZOL (PANTOPRAZOLE SODIUM) [Concomitant]
  4. IBUPROFEN [Concomitant]
  5. ACETAMINOPHEN [Concomitant]

REACTIONS (3)
  - DRUG INTERACTION [None]
  - GASTROINTESTINAL PAIN [None]
  - IRRITABLE BOWEL SYNDROME [None]
